FAERS Safety Report 16216805 (Version 1)
Quarter: 2019Q2

REPORT INFORMATION
  Report Type: Spontaneous
  Country: ES (occurrence: ES)
  Receive Date: 20190419
  Receipt Date: 20190419
  Transmission Date: 20190711
  Serious: Yes (Hospitalization, Other)
  Sender: FDA-Public Use
  Company Number: ES-ACCORD-122357

PATIENT
  Age: 78 Year
  Sex: Male

DRUGS (10)
  1. ATORVASTATIN/ATORVASTATIN CALCIUM [Suspect]
     Active Substance: ATORVASTATIN CALCIUM
     Indication: PRODUCT USED FOR UNKNOWN INDICATION
     Dosage: 40 MG QD?STATIN TREATMENT FOR MORE THAN 3 YEARS
  2. PARACETAMOL [Concomitant]
     Active Substance: ACETAMINOPHEN
     Dosage: 650 MG/T.I.D
  3. FUROSEMIDE. [Concomitant]
     Active Substance: FUROSEMIDE
     Indication: PRODUCT USED FOR UNKNOWN INDICATION
     Dosage: 40 MG QD
  4. VERAPAMIL [Concomitant]
     Active Substance: VERAPAMIL HYDROCHLORIDE
     Dosage: 240 MG QD
  5. ERTAPENEM/ERTAPENEM SODIUM [Suspect]
     Active Substance: ERTAPENEM
     Indication: ORCHITIS
     Route: 042
  6. ALLOPURINOL. [Concomitant]
     Active Substance: ALLOPURINOL
     Dosage: 300 MG QD
  7. COLCHICINE. [Interacting]
     Active Substance: COLCHICINE
     Indication: PRODUCT USED FOR UNKNOWN INDICATION
     Dosage: ALSO RECEIVED INCREASED DOSE OF 4  MG
  8. DUTASTERIDE/TAMSULOSIN HYDROCHLORIDE [Concomitant]
     Dosage: 0.5/0.4 QD
  9. CLARITHROMYCIN/CLARITHROMYCIN LACTOBIONATE [Interacting]
     Active Substance: CLARITHROMYCIN LACTOBIONATE
     Indication: ORCHITIS
     Route: 048
  10. OMEPRAZOLE. [Concomitant]
     Active Substance: OMEPRAZOLE
     Dosage: 20 MG QD

REACTIONS (4)
  - Neuromyopathy [Recovering/Resolving]
  - Drug interaction [Unknown]
  - Toxicity to various agents [Recovering/Resolving]
  - Gout [Unknown]
